FAERS Safety Report 15120639 (Version 1)
Quarter: 2018Q3

REPORT INFORMATION
  Report Type: Spontaneous
  Country: GB (occurrence: GB)
  Receive Date: 20180709
  Receipt Date: 20180709
  Transmission Date: 20181010
  Serious: Yes (Hospitalization, Other)
  Sender: FDA-Public Use
  Company Number: GB-GILEAD-2018-0348642

PATIENT
  Age: 34 Year
  Sex: Male

DRUGS (5)
  1. COCAINE [Concomitant]
     Active Substance: COCAINE
     Indication: SUBSTANCE USE
     Dosage: AND CRACK COCAINE
  2. GAMMA?BUTYROLACTONE [Concomitant]
     Active Substance: BUTYROLACTONE
     Indication: SUBSTANCE USE
  3. METAMFETAMINE [Concomitant]
     Active Substance: METHAMPHETAMINE
     Indication: SUBSTANCE USE
     Dosage: CRYSTAL METH.
  4. METHYLENEDIOXYMETHAMPHETAMINE [Concomitant]
     Active Substance: MIDOMAFETAMINE
     Indication: SUBSTANCE USE
  5. EMTRICITABINE/TENOFOVIR DF [Suspect]
     Active Substance: EMTRICITABINE
     Indication: PROPHYLAXIS AGAINST HIV INFECTION
     Dosage: 1 DF, QD
     Route: 048
     Dates: start: 20180404

REACTIONS (2)
  - Methaemoglobinaemia [Recovered/Resolved]
  - Cyanosis [Recovered/Resolved]

NARRATIVE: CASE EVENT DATE: 2018
